FAERS Safety Report 25588918 (Version 2)
Quarter: 2025Q3

REPORT INFORMATION
  Report Type: Spontaneous
  Country: CN (occurrence: CN)
  Receive Date: 20250722
  Receipt Date: 20250904
  Transmission Date: 20251021
  Serious: Yes (Life-Threatening, Hospitalization, Other)
  Sender: ROCHE
  Company Number: CN-ROCHE-10000339154

PATIENT
  Age: 45 Year
  Sex: Male

DRUGS (3)
  1. EMICIZUMAB [Suspect]
     Active Substance: EMICIZUMAB
     Indication: Factor VIII deficiency
     Route: 065
     Dates: start: 20240429, end: 20240527
  2. PROTHROMBIN COMPLEX CONCENTRATE [Concomitant]
     Active Substance: COAGULATION FACTOR IX HUMAN\COAGULATION FACTOR VII HUMAN\COAGULATION FACTOR X HUMAN\PROTEIN C\PROTEI
  3. Coagulation Factor VII [Concomitant]

REACTIONS (12)
  - Wound decomposition [Unknown]
  - Haemorrhage [Unknown]
  - Pyrexia [Unknown]
  - Pathological fracture [Unknown]
  - Arthralgia [Unknown]
  - Joint swelling [Unknown]
  - Skin disorder [Unknown]
  - Hyperpyrexia [Unknown]
  - Haemophilic pseudotumour [Unknown]
  - Infection [Unknown]
  - Septic shock [Unknown]
  - Haematoma [Unknown]
